FAERS Safety Report 9090627 (Version 1)
Quarter: 2013Q1

REPORT INFORMATION
  Report Type: Spontaneous
  Country: US (occurrence: US)
  Receive Date: 20130201
  Receipt Date: 20130201
  Transmission Date: 20140127
  Serious: No
  Sender: FDA-Public Use
  Company Number: US-ABBOTT-13P-163-1030368-00

PATIENT
  Age: 26 Year
  Sex: Female

DRUGS (4)
  1. HUMIRA [Suspect]
     Indication: RHEUMATOID ARTHRITIS
  2. ENBREL [Concomitant]
     Indication: RHEUMATOID ARTHRITIS
  3. MTX [Concomitant]
     Indication: RHEUMATOID ARTHRITIS
  4. PLAQUENIL [Concomitant]
     Indication: RHEUMATOID ARTHRITIS

REACTIONS (5)
  - Rheumatoid arthritis [Unknown]
  - Asthenia [Unknown]
  - Fatigue [Unknown]
  - Listless [Unknown]
  - Memory impairment [Unknown]
